FAERS Safety Report 4698999-1 (Version None)
Quarter: 2005Q2

REPORT INFORMATION
  Report Type: 
  Country: None (occurrence: None)
  Receive Date: 20050622
  Receipt Date: 20050622
  Transmission Date: 20051028
  Serious: Yes (Hospitalization)
  Sender: FDA-Public Use
  Company Number: None

PATIENT
  Age: 29 Year
  Sex: Male
  Weight: 94.4 kg

DRUGS (1)
  1. TEMOZOLMIDE 75 MG/M2 SCHERING PLOUGH [Suspect]
     Indication: OLIGODENDROGLIOMA
     Dosage: 75 MG/M2 X49 DAYS ORAL
     Route: 048
     Dates: start: 20020725, end: 20021025

REACTIONS (2)
  - APPENDICITIS [None]
  - CAECITIS [None]
